FAERS Safety Report 4694325-2 (Version None)
Quarter: 2005Q2

REPORT INFORMATION
  Report Type: 
  Country: None (occurrence: None)
  Receive Date: 20050614
  Receipt Date: 20050228
  Transmission Date: 20051028
  Serious: No
  Sender: FDA-Public Use
  Company Number: USA050391980

PATIENT
  Age: 63 Year
  Sex: Male

DRUGS (9)
  1. CIALIS [Suspect]
     Indication: ERECTILE DYSFUNCTION
     Dosage: 20 MG
     Dates: start: 20050201
  2. GLIPIZIDE [Concomitant]
  3. ZETIA [Concomitant]
  4. DIOVAN HCT [Concomitant]
  5. ACTOS [Concomitant]
  6. OMEGA - 3 FISH OIL [Concomitant]
  7. NASONEX [Concomitant]
  8. ZOCOR (SIMVASTATIN RATIOPHARM) [Concomitant]
  9. METFORMIN HCL [Concomitant]

REACTIONS (1)
  - DRUG INEFFECTIVE [None]
